FAERS Safety Report 9405610 (Version 2)
Quarter: 2013Q3

REPORT INFORMATION
  Report Type: Spontaneous
  Country: US (occurrence: US)
  Receive Date: 20130717
  Receipt Date: 20130827
  Transmission Date: 20140515
  Serious: No
  Sender: FDA-Public Use
  Company Number: US-009507513-1307USA008587

PATIENT
  Sex: Female
  Weight: 56.69 kg

DRUGS (1)
  1. VICTRELIS [Suspect]
     Indication: HEPATITIS C
     Dosage: 200 MG, TID, TAKE 4  CAPSULES  BY MOUTH THREE TIMES A DAY EVERY 7 TO 9 HOURS
     Route: 048
     Dates: start: 201306

REACTIONS (4)
  - Dysgeusia [Unknown]
  - Dysgeusia [Unknown]
  - Nausea [Unknown]
  - Diarrhoea [Unknown]
